FAERS Safety Report 25090087 (Version 1)
Quarter: 2025Q1

REPORT INFORMATION
  Report Type: Spontaneous
  Country: US (occurrence: None)
  Receive Date: 20250317
  Receipt Date: 20250317
  Transmission Date: 20250409
  Serious: Yes (Hospitalization, Other)
  Sender: FDA-CTU
  Company Number: None

PATIENT
  Age: 61 Year
  Sex: Female
  Weight: 87.75 kg

DRUGS (19)
  1. WINREVAIR [Suspect]
     Active Substance: SOTATERCEPT-CSRK
     Indication: Pulmonary hypertension
     Route: 058
     Dates: start: 20240809, end: 20250311
  2. AMBRISENTAN [Concomitant]
     Active Substance: AMBRISENTAN
  3. TADALAFIL [Concomitant]
     Active Substance: TADALAFIL
  4. SELEXIPAG [Concomitant]
     Active Substance: SELEXIPAG
  5. TOPIRAMATE [Concomitant]
     Active Substance: TOPIRAMATE
  6. TRENTAL [Concomitant]
     Active Substance: PENTOXIFYLLINE
  7. PENICILLAMINE [Concomitant]
     Active Substance: PENICILLAMINE
  8. NALOXONE [Concomitant]
     Active Substance: NALOXONE
  9. METOCLOPRAMIDE [Concomitant]
     Active Substance: METOCLOPRAMIDE
  10. LOSARTAN [Concomitant]
     Active Substance: LOSARTAN
  11. HYDROXYCHLOROQUINE [Concomitant]
     Active Substance: HYDROXYCHLOROQUINE
  12. GABAPENTIN [Concomitant]
     Active Substance: GABAPENTIN
  13. FERROUS SULFATE [Concomitant]
     Active Substance: FERROUS SULFATE
  14. BUSPIRONE [Concomitant]
     Active Substance: BUSPIRONE HYDROCHLORIDE
  15. ESCITALOPRAM [Concomitant]
     Active Substance: ESCITALOPRAM OXALATE
  16. VITAMIN D2 [Concomitant]
     Active Substance: ERGOCALCIFEROL
  17. AMLODIPINE [Concomitant]
     Active Substance: AMLODIPINE BESYLATE
  18. ALBUTEROL [Concomitant]
     Active Substance: ALBUTEROL
  19. ACETAMINOPHEN [Concomitant]
     Active Substance: ACETAMINOPHEN

REACTIONS (1)
  - Pericardial effusion [None]

NARRATIVE: CASE EVENT DATE: 20250307
